FAERS Safety Report 21349889 (Version 5)
Quarter: 2023Q1

REPORT INFORMATION
  Report Type: Report from Study
  Country: CA (occurrence: CA)
  Receive Date: 20220919
  Receipt Date: 20230331
  Transmission Date: 20230417
  Serious: Yes (Hospitalization)
  Sender: FDA-Public Use
  Company Number: CA-OTSUKA-2022_044543

PATIENT
  Sex: Male

DRUGS (1)
  1. ARIPIPRAZOLE [Suspect]
     Active Substance: ARIPIPRAZOLE
     Indication: Product used for unknown indication
     Dosage: 300 MG, EVERY 4 WEEKS (EVERY 28 DAYS)
     Route: 030

REACTIONS (7)
  - Mental disorder [Unknown]
  - Feeling abnormal [Not Recovered/Not Resolved]
  - Dry mouth [Not Recovered/Not Resolved]
  - Restlessness [Not Recovered/Not Resolved]
  - Insomnia [Not Recovered/Not Resolved]
  - Underdose [Unknown]
  - Therapy interrupted [Unknown]

NARRATIVE: CASE EVENT DATE: 20220101
